FAERS Safety Report 13110187 (Version 1)
Quarter: 2017Q1

REPORT INFORMATION
  Report Type: Spontaneous
  Country: US (occurrence: US)
  Receive Date: 20170112
  Receipt Date: 20170112
  Transmission Date: 20170428
  Serious: Yes (Death)
  Sender: FDA-Public Use
  Company Number: US-ROCHE-1277537

PATIENT
  Age: 70 Year
  Sex: Male
  Weight: 105.6 kg

DRUGS (1)
  1. ACTIVASE [Suspect]
     Active Substance: ALTEPLASE
     Indication: CEREBROVASCULAR ACCIDENT
     Dosage: ONCE
     Route: 042
     Dates: start: 20130827, end: 20130827

REACTIONS (1)
  - Haemorrhagic infarction [Fatal]

NARRATIVE: CASE EVENT DATE: 20130829
